FAERS Safety Report 4767388-3 (Version None)
Quarter: 2005Q3

REPORT INFORMATION
  Report Type: 
  Country: None (occurrence: None)
  Receive Date: 20050913
  Receipt Date: 20050902
  Transmission Date: 20060218
  Serious: Yes (Hospitalization)
  Sender: FDA-Public Use
  Company Number: JP-MERCK-0509USA00719

PATIENT
  Age: 73 Year
  Sex: Female

DRUGS (6)
  1. ZOCOR [Suspect]
     Indication: HYPERLIPIDAEMIA
     Route: 048
  2. TERNELIN [Concomitant]
     Route: 048
  3. ULGUT [Concomitant]
     Route: 048
  4. NORVASC [Concomitant]
     Route: 048
  5. DIOVAN [Concomitant]
     Route: 048
  6. BIOFERMIN [Concomitant]
     Route: 048

REACTIONS (2)
  - MALAISE [None]
  - RENAL FAILURE [None]
